FAERS Safety Report 4284612-4 (Version None)
Quarter: 2004Q1

REPORT INFORMATION
  Report Type: 
  Country: None (occurrence: None)
  Receive Date: 20040130
  Receipt Date: 20040114
  Transmission Date: 20041129
  Serious: Yes (Hospitalization)
  Sender: FDA-Public Use
  Company Number: DSA_23799_2004

PATIENT
  Age: 19 Year
  Sex: Male

DRUGS (6)
  1. TAVOR [Suspect]
     Dates: start: 20031219, end: 20031226
  2. ALCOHOL [Suspect]
     Dates: start: 20031219, end: 20031226
  3. ATOSIL [Suspect]
     Dosage: 25 ML PO
     Route: 048
     Dates: start: 20031219, end: 20031226
  4. DOXEPIN HCL [Suspect]
     Dosage: 20 TAB PO
     Route: 048
     Dates: start: 20031219, end: 20031226
  5. VALERIAN [Suspect]
     Dates: start: 20031219, end: 20031226
  6. ZOPICLONE [Suspect]
     Dates: start: 20031219, end: 20031226

REACTIONS (6)
  - ANXIETY [None]
  - DEPRESSED LEVEL OF CONSCIOUSNESS [None]
  - INTENTIONAL OVERDOSE [None]
  - JOINT STIFFNESS [None]
  - MULTIPLE DRUG OVERDOSE [None]
  - PSYCHOTIC DISORDER [None]
